FAERS Safety Report 8807862 (Version 1)
Quarter: 2012Q4

REPORT INFORMATION
  Report Type: 
  Country: JP (occurrence: JP)
  Receive Date: 20120925
  Receipt Date: 20120925
  Transmission Date: 20130627
  Serious: Yes (Disabling)
  Sender: FDA-Public Use
  Company Number: JP-GLAXOSMITHKLINE-B0832109A

PATIENT
  Age: 91 Year
  Sex: Female
  Weight: 40 kg

DRUGS (8)
  1. VALTREX [Suspect]
     Indication: HERPES ZOSTER
     Dosage: 1000MG Three times per day
     Route: 048
     Dates: start: 20120604, end: 20120608
  2. AMLODIPINE [Concomitant]
     Route: 048
  3. TAKEPRON [Concomitant]
     Route: 048
  4. ALFAROL [Concomitant]
     Route: 048
  5. TOWAMIN [Concomitant]
     Route: 048
  6. TENORMIN [Concomitant]
     Route: 048
  7. BIOFERMIN [Concomitant]
     Route: 048
  8. SERMION [Concomitant]
     Route: 048

REACTIONS (2)
  - Renal failure acute [Recovering/Resolving]
  - Neuropsychiatric syndrome [Recovered/Resolved with Sequelae]
